FAERS Safety Report 9964643 (Version 3)
Quarter: 2014Q1

REPORT INFORMATION
  Report Type: Spontaneous
  Country: US (occurrence: US)
  Receive Date: 20140305
  Receipt Date: 20140321
  Transmission Date: 20141002
  Serious: Yes (Other)
  Sender: FDA-Public Use
  Company Number: PHEH2014US004382

PATIENT
  Age: 65 Year
  Sex: Female

DRUGS (25)
  1. RECLAST [Suspect]
     Indication: SENILE OSTEOPOROSIS
     Dosage: 5 MG, UNK
     Route: 042
     Dates: start: 20140220
  2. CLONIDINE HCL [Concomitant]
     Indication: HYPERTENSION
     Dosage: 2 TABLET QAM AND 1 PO QHS
     Route: 048
     Dates: start: 20130719
  3. FLUOXETINE HCL [Concomitant]
     Indication: MENOPAUSE
     Dosage: 10 MG,DAILY
     Dates: start: 20131226
  4. PROTON//OMEPRAZOLE [Concomitant]
     Indication: GASTROOESOPHAGEAL REFLUX DISEASE
     Dosage: 40 MG, DAILY
     Route: 048
  5. SYNTHYROID [Concomitant]
     Indication: HYPOTHYROIDISM
     Dosage: UNK UKN, DAILY
     Route: 048
  6. WELLBUTRIN [Concomitant]
     Dosage: 1 DF, BID
     Route: 048
     Dates: start: 20130430
  7. CALTRATE [Concomitant]
     Dosage: 1 DF, QD
     Route: 048
  8. ALLER TEC [Concomitant]
     Dosage: 1 DF, QD
  9. CATAPRES                                /UNK/ [Concomitant]
     Dosage: 0.2 MG IN MORNING AND 0.1 MG AT BEDTIME
     Route: 048
     Dates: start: 20130719
  10. PROZAC [Concomitant]
     Dosage: 1 DF, QD
     Route: 048
  11. SYNTHROID [Concomitant]
     Dosage: TAKES AT 6 AM
     Route: 048
     Dates: start: 20130213
  12. PROTONIX [Concomitant]
     Dosage: 1 DF, QD
     Route: 048
  13. HYOSCYAMINE SULFATE [Concomitant]
     Indication: ABDOMINAL PAIN
     Dosage: 1 DF, AS REQUIRED UNDER THE TONGUE
     Route: 060
  14. PANTOPRAZOLE SODIUM [Concomitant]
     Dosage: 1 DF, QD
     Route: 048
     Dates: start: 20131226
  15. VOLTAREN ^CIBA-GEIGY^ [Concomitant]
     Indication: ARTHROPATHY
     Dosage: 4 G, UNK
     Route: 062
  16. ASPIRIN [Concomitant]
     Dosage: 1 DF, QD
     Route: 048
  17. CALTRATE 600 + VITAMIN D [Concomitant]
     Dosage: 1 DF, BID
     Route: 048
  18. PREVACID [Concomitant]
     Dosage: 1 DF, QD
     Route: 048
  19. VITAMIN B COMPLEX [Concomitant]
     Dosage: 1 DF, QD
     Route: 048
  20. VITAMIIN C [Concomitant]
     Dosage: 1 DF, QD
     Route: 048
  21. ZYRTEC ALLERGY [Concomitant]
     Dosage: 1 DF, QD
  22. VITAMIN D3 [Concomitant]
     Dosage: 100 MG, UNK
     Route: 048
  23. FLAXSEED OIL [Concomitant]
     Dosage: 1 DF, UNK
     Route: 048
  24. MAGNESIUM [Concomitant]
     Dosage: 400 MG, UNK
     Route: 048
  25. CHROMIUM PICOLINATE [Concomitant]
     Dosage: 200 UG, UNK
     Route: 048

REACTIONS (20)
  - Heart rate increased [Unknown]
  - Blood pressure decreased [Recovered/Resolved]
  - Palpitations [Recovered/Resolved]
  - Fatigue [Recovered/Resolved]
  - Pain [Recovered/Resolved]
  - Diarrhoea [Recovered/Resolved]
  - Headache [Recovered/Resolved]
  - Viral infection [Unknown]
  - Blood glucose increased [Unknown]
  - Blood thyroid stimulating hormone increased [Unknown]
  - Hypoxia [Unknown]
  - Vomiting [Unknown]
  - Nausea [Unknown]
  - Influenza like illness [Unknown]
  - Myalgia [Unknown]
  - Pyrexia [Unknown]
  - Chills [Unknown]
  - Bone pain [Unknown]
  - Arthralgia [Unknown]
  - Pain in extremity [Unknown]
